FAERS Safety Report 4626765-1 (Version None)
Quarter: 2005Q2

REPORT INFORMATION
  Report Type: 
  Country: None (occurrence: None)
  Receive Date: 20050405
  Receipt Date: 20050321
  Transmission Date: 20051028
  Serious: Yes (Hospitalization)
  Sender: FDA-Public Use
  Company Number: US-KINGPHARMUSA00001-K200500390

PATIENT
  Age: 79 Year
  Sex: Female

DRUGS (3)
  1. ALTACE [Suspect]
     Dosage: 5 MG, QD
     Route: 048
     Dates: end: 20050122
  2. LASILIX [Suspect]
     Dosage: 160 MG, QD
     Route: 048
     Dates: end: 20050122
  3. ALDACTONE [Suspect]
     Dosage: 50 MG, QD
     Route: 048
     Dates: end: 20050122

REACTIONS (6)
  - ATRIOVENTRICULAR BLOCK COMPLETE [None]
  - DEHYDRATION [None]
  - DIARRHOEA [None]
  - HAEMODIALYSIS [None]
  - HYPERKALAEMIA [None]
  - RENAL IMPAIRMENT [None]
